FAERS Safety Report 23619560 (Version 4)
Quarter: 2025Q2

REPORT INFORMATION
  Report Type: Report from Study
  Country: CA (occurrence: CA)
  Receive Date: 20240312
  Receipt Date: 20250505
  Transmission Date: 20250717
  Serious: Yes (Other)
  Sender: ABBVIE
  Company Number: CA-ABBVIE-5671685

PATIENT
  Age: 46 Year
  Sex: Female

DRUGS (3)
  1. SKYRIZI [Suspect]
     Active Substance: RISANKIZUMAB-RZAA
     Indication: Crohn^s disease
     Route: 058
     Dates: start: 2024
  2. SKYRIZI [Suspect]
     Active Substance: RISANKIZUMAB-RZAA
     Route: 058
  3. SKYRIZI [Suspect]
     Active Substance: RISANKIZUMAB-RZAA
     Indication: Crohn^s disease
     Dosage: LAST ADMIN DATE 2024
     Route: 042
     Dates: start: 20240112

REACTIONS (15)
  - Stoma creation [Unknown]
  - Gastrointestinal stoma output increased [Unknown]
  - Incorrect dose administered [Unknown]
  - Muscle spasms [Unknown]
  - Pain [Unknown]
  - Crohn^s disease [Unknown]
  - Illness [Unknown]
  - Nipple pain [Unknown]
  - Pruritus [Unknown]
  - Erythema [Unknown]
  - Device issue [Unknown]
  - Papule [Unknown]
  - Breast induration [Unknown]
  - Arthralgia [Unknown]
  - Stomal hernia [Unknown]

NARRATIVE: CASE EVENT DATE: 20240101
